FAERS Safety Report 16747349 (Version 4)
Quarter: 2023Q1

REPORT INFORMATION
  Report Type: Other
  Country: CA (occurrence: None)
  Receive Date: 20190827
  Receipt Date: 20230323
  Transmission Date: 20230417
  Serious: No
  Sender: FDA-Public Use
  Company Number: CA-ROCHE-2387806

PATIENT
  Age: 47 Year
  Sex: Female

DRUGS (17)
  1. OCREVUS [Suspect]
     Active Substance: OCRELIZUMAB
     Indication: Relapsing-remitting multiple sclerosis
     Dosage: 300 MG AT DAY 0 AND 14, THEN 600 MG EVERY 6 MONTH
     Route: 042
     Dates: start: 20190805
  2. ATIVAN [Concomitant]
     Active Substance: LORAZEPAM
     Dosage: TO HELP HER SLEEP?TOOK 0.5MG LAST NIGHT
  3. COLACE [Concomitant]
     Active Substance: DOCUSATE SODIUM
  4. BISOPROLOL [Concomitant]
     Active Substance: BISOPROLOL
  5. TELMISARTAN [Concomitant]
     Active Substance: TELMISARTAN
  6. METFORMIN [Concomitant]
     Active Substance: METFORMIN HYDROCHLORIDE
  7. ROSUVASTATIN [Concomitant]
     Active Substance: ROSUVASTATIN
  8. ISOPTIN [Concomitant]
     Active Substance: VERAPAMIL HYDROCHLORIDE
  9. VENLAFAXINE [Concomitant]
     Active Substance: VENLAFAXINE HYDROCHLORIDE
  10. DILANTIN [Concomitant]
     Active Substance: PHENYTOIN
  11. GABAPENTIN [Concomitant]
     Active Substance: GABAPENTIN
     Dosage: NIGHT AND IN MORNING, SOMETIMES AFTERNOON
  12. LEVOTHYROXINE [Concomitant]
     Active Substance: LEVOTHYROXINE
  13. EPIVAL [Concomitant]
     Active Substance: DIVALPROEX SODIUM
  14. NAPROXEN [Concomitant]
     Active Substance: NAPROXEN
     Dosage: ANTI-INFLAMMATORY
  15. EFFEXOR [Concomitant]
     Active Substance: VENLAFAXINE HYDROCHLORIDE
  16. VENTOLIN [Concomitant]
     Active Substance: ALBUTEROL SULFATE
  17. FLOVENT [Concomitant]
     Active Substance: FLUTICASONE PROPIONATE

REACTIONS (11)
  - Oral herpes [Recovered/Resolved]
  - Insomnia [Not Recovered/Not Resolved]
  - Insomnia [Not Recovered/Not Resolved]
  - Fatigue [Not Recovered/Not Resolved]
  - Irritability [Not Recovered/Not Resolved]
  - Depression [Not Recovered/Not Resolved]
  - Increased upper airway secretion [Not Recovered/Not Resolved]
  - Stomatitis [Recovered/Resolved]
  - Gingivitis [Recovered/Resolved]
  - Aphthous ulcer [Recovered/Resolved]
  - Gingival bleeding [Recovered/Resolved]

NARRATIVE: CASE EVENT DATE: 20190821
